FAERS Safety Report 9109096 (Version 1)
Quarter: 2013Q1

REPORT INFORMATION
  Report Type: Spontaneous
  Country: US (occurrence: US)
  Receive Date: 20130222
  Receipt Date: 20130222
  Transmission Date: 20140127
  Serious: Yes (Other)
  Sender: FDA-Public Use
  Company Number: US-AMGEN-USASP2013011834

PATIENT
  Age: 62 Year
  Sex: Female

DRUGS (1)
  1. ENBREL [Suspect]
     Indication: SPONDYLOARTHROPATHY
     Dosage: 50 MG, QWK
     Dates: start: 20120719

REACTIONS (7)
  - Iritis [Not Recovered/Not Resolved]
  - Chills [Recovered/Resolved]
  - Fatigue [Recovered/Resolved]
  - Nasal congestion [Recovered/Resolved]
  - Arthralgia [Not Recovered/Not Resolved]
  - Sinusitis [Recovered/Resolved]
  - Headache [Recovered/Resolved]
